FAERS Safety Report 7958341-7 (Version None)
Quarter: 2011Q4

REPORT INFORMATION
  Report Type: 
  Country: None (occurrence: None)
  Receive Date: 20111205
  Receipt Date: 20111202
  Transmission Date: 20120403
  Serious: Yes (Hospitalization, Other)
  Sender: FDA-Public Use
  Company Number: US-ACTELION-A-US2011-56956

PATIENT

DRUGS (9)
  1. TRACLEER [Suspect]
     Indication: PULMONARY ARTERIAL HYPERTENSION
     Dosage: 125 MG, BID
     Route: 048
  2. POTASSIUM CHLORIDE [Concomitant]
  3. ALDACTONE [Concomitant]
  4. EPOPROSTENOL SODIUM [Suspect]
     Indication: PULMONARY ARTERIAL HYPERTENSION
     Dosage: 32 NG/KG, PER MIN
     Route: 042
     Dates: start: 20110904
  5. FLOLAN [Suspect]
  6. SILDENAFIL [Concomitant]
  7. LASIX [Concomitant]
  8. FERROUS SULFATE TAB [Concomitant]
  9. VIAGRA [Concomitant]

REACTIONS (7)
  - CARDIAC FAILURE [None]
  - DYSPNOEA [None]
  - ABDOMINAL DISTENSION [None]
  - OEDEMA PERIPHERAL [None]
  - FLUID OVERLOAD [None]
  - DEVICE RELATED INFECTION [None]
  - RIGHT VENTRICULAR FAILURE [None]
